FAERS Safety Report 6857719-2 (Version None)
Quarter: 2010Q3

REPORT INFORMATION
  Report Type: 
  Country: None (occurrence: None)
  Receive Date: 20100719
  Receipt Date: 20080123
  Transmission Date: 20110219
  Serious: No
  Sender: FDA-Public Use
  Company Number: US-PFIZER INC-2008009861

PATIENT
  Sex: Female
  Weight: 54.43 kg

DRUGS (6)
  1. CHANTIX [Suspect]
     Indication: SMOKING CESSATION THERAPY
     Dosage: EVERY DAY
     Dates: start: 20080113
  2. NEURONTIN [Interacting]
     Indication: NEURALGIA
  3. OXYCODONE HCL [Interacting]
     Indication: PAIN
  4. WARFARIN SODIUM [Concomitant]
  5. CYMBALTA [Concomitant]
     Indication: DEPRESSION
  6. HYDROCODONE [Concomitant]
     Indication: FIBROMYALGIA

REACTIONS (3)
  - DRUG INEFFECTIVE [None]
  - DRUG INTERACTION [None]
  - NEURALGIA [None]
